FAERS Safety Report 14898238 (Version 3)
Quarter: 2020Q2

REPORT INFORMATION
  Report Type: Spontaneous
  Country: US (occurrence: US)
  Receive Date: 20180515
  Receipt Date: 20200424
  Transmission Date: 20200713
  Serious: No
  Sender: FDA-Public Use
  Company Number: US-SA-2018SA006600

PATIENT
  Age: 66 Year
  Sex: Female

DRUGS (1)
  1. TOUJEO [Suspect]
     Active Substance: INSULIN GLARGINE
     Indication: TYPE 2 DIABETES MELLITUS
     Dosage: 55 IU, BID
     Route: 051
     Dates: start: 201608

REACTIONS (3)
  - Inappropriate schedule of product administration [Unknown]
  - Fibromyalgia [Unknown]
  - Wrong technique in device usage process [Unknown]
